FAERS Safety Report 8010658-6 (Version None)
Quarter: 2011Q4

REPORT INFORMATION
  Report Type: 
  Country: None (occurrence: None)
  Receive Date: 20111228
  Receipt Date: 20111215
  Transmission Date: 20120403
  Serious: Yes (Hospitalization)
  Sender: FDA-Public Use
  Company Number: PHHY2011FR110144

PATIENT
  Sex: Male

DRUGS (2)
  1. CLOZAPINE [Suspect]
     Dosage: 100 MG/DAY
  2. CLOZAPINE [Suspect]
     Dosage: 200 MG, QD
     Dates: start: 20110831

REACTIONS (3)
  - ACUTE ABDOMEN [None]
  - SUBILEUS [None]
  - VOLVULUS [None]
